FAERS Safety Report 24351663 (Version 1)
Quarter: 2024Q3

REPORT INFORMATION
  Report Type: Report from Study
  Country: IT (occurrence: IT)
  Receive Date: 20240923
  Receipt Date: 20240923
  Transmission Date: 20241016
  Serious: No
  Sender: ROCHE
  Company Number: None

PATIENT
  Age: 59 Year
  Sex: Female

DRUGS (2)
  1. TRASTUZUMAB [Suspect]
     Active Substance: TRASTUZUMAB
     Indication: HER2 positive breast cancer
     Dosage: START OF THERAPY 09/22/2023 - WEEKLY THERAPY - 7TH CYCLE
     Route: 065
     Dates: start: 20231103, end: 20231103
  2. PACLITAXEL [Suspect]
     Active Substance: PACLITAXEL
     Indication: HER2 positive breast cancer
     Dosage: START OF THERAPY 09/22/2023 - WEEKLY THERAPY - 7TH CYCLE
     Route: 065
     Dates: start: 20231103, end: 20231103

REACTIONS (1)
  - Erythema [Recovering/Resolving]
